FAERS Safety Report 21890823 (Version 1)
Quarter: 2023Q1

REPORT INFORMATION
  Report Type: Spontaneous
  Country: US (occurrence: None)
  Receive Date: 20230119
  Receipt Date: 20230119
  Transmission Date: 20230418
  Serious: Yes (Life-Threatening, Disabling)
  Sender: FDA-Public Use
  Company Number: None

PATIENT

DRUGS (1)
  1. ALENDRONATE [Suspect]
     Active Substance: ALENDRONATE SODIUM

REACTIONS (18)
  - Heart rate increased [None]
  - Chest pain [None]
  - Fear [None]
  - Myocardial infarction [None]
  - Gait disturbance [None]
  - Loose tooth [None]
  - Bone loss [None]
  - Therapy cessation [None]
  - Arthralgia [None]
  - Asthenia [None]
  - Middle insomnia [None]
  - Bone pain [None]
  - Arthralgia [None]
  - Bone pain [None]
  - Arthralgia [None]
  - Emotional disorder [None]
  - Crying [None]
  - Cardiac disorder [None]

NARRATIVE: CASE EVENT DATE: 20220808
